FAERS Safety Report 4664230-6 (Version None)
Quarter: 2005Q2

REPORT INFORMATION
  Report Type: 
  Country: None (occurrence: None)
  Receive Date: 20050516
  Receipt Date: 20050516
  Transmission Date: 20051028
  Serious: Yes (Death)
  Sender: FDA-Public Use
  Company Number: None

PATIENT
  Sex: Male
  Weight: 90.7194 kg

DRUGS (1)
  1. ACTIQ [Suspect]
     Indication: NEOPLASM MALIGNANT
     Dosage: EVERY 4 HOUR

REACTIONS (4)
  - ABNORMAL BEHAVIOUR [None]
  - BRAIN NEOPLASM MALIGNANT [None]
  - CARDIAC DISORDER [None]
  - DRUG DEPENDENCE [None]
